FAERS Safety Report 4492717-8 (Version None)
Quarter: 2004Q4

REPORT INFORMATION
  Report Type: 
  Country: None (occurrence: None)
  Receive Date: 20041104
  Receipt Date: 20041028
  Transmission Date: 20050328
  Serious: Yes (Death)
  Sender: FDA-Public Use
  Company Number: 200418373US

PATIENT
  Age: 80 Year
  Sex: Female

DRUGS (7)
  1. LOVENOX [Suspect]
     Indication: ATRIAL FIBRILLATION
     Dates: start: 20040915, end: 20040916
  2. COUMADIN [Concomitant]
     Dosage: DOSE: UNK
     Dates: start: 20040924, end: 20040925
  3. ASPIRIN [Concomitant]
     Dates: start: 20040912, end: 20040914
  4. ROCEPHIN [Concomitant]
     Indication: CHRONIC OBSTRUCTIVE AIRWAYS DISEASE EXACERBATED
     Route: 042
  5. ROCEPHIN [Concomitant]
     Indication: SEPSIS
     Route: 042
  6. CIPRO [Concomitant]
     Indication: SEPSIS
  7. FLAGYL [Concomitant]
     Indication: CLOSTRIDIUM COLITIS

REACTIONS (8)
  - DISSEMINATED INTRAVASCULAR COAGULATION [None]
  - HAEMORRHAGE [None]
  - INTERNATIONAL NORMALISED RATIO INCREASED [None]
  - MUSCLE HAEMORRHAGE [None]
  - RENAL FAILURE [None]
  - RENAL TUBULAR NECROSIS [None]
  - SCAN ABDOMEN ABNORMAL [None]
  - SEPTIC SHOCK [None]
